FAERS Safety Report 13324030 (Version 1)
Quarter: 2017Q1

REPORT INFORMATION
  Report Type: Spontaneous
  Country: US (occurrence: US)
  Receive Date: 20170308
  Receipt Date: 20170308
  Transmission Date: 20170428
  Serious: No
  Sender: FDA-Public Use
  Company Number: US-AMGEN-USASP2016142411

PATIENT
  Age: 29 Year
  Sex: Female
  Weight: 94 kg

DRUGS (3)
  1. SENSIPAR [Suspect]
     Active Substance: CINACALCET HYDROCHLORIDE
     Indication: HYPERPARATHYROIDISM SECONDARY
     Dosage: 30 MG, QD
     Route: 048
     Dates: start: 20160127
  2. SENSIPAR [Suspect]
     Active Substance: CINACALCET HYDROCHLORIDE
     Dosage: 60 MG, QD
     Route: 065
  3. SENSIPAR [Suspect]
     Active Substance: CINACALCET HYDROCHLORIDE
     Indication: HYPERCALCAEMIA
     Dosage: 15 MG, UNK
     Route: 048
     Dates: start: 20160921

REACTIONS (4)
  - Treatment noncompliance [Unknown]
  - Muscle spasms [Recovered/Resolved]
  - Blood calcium increased [Not Recovered/Not Resolved]
  - Off label use [Unknown]
